FAERS Safety Report 8553066-1 (Version None)
Quarter: 2012Q3

REPORT INFORMATION
  Report Type: 
  Country: None (occurrence: None)
  Receive Date: 20120731
  Receipt Date: 20120726
  Transmission Date: 20120928
  Serious: Yes (Other)
  Sender: FDA-Public Use
  Company Number: US-SANOFI-AVENTIS-2012SA050338

PATIENT
  Age: 71 Year
  Sex: Female
  Weight: 58.96 kg

DRUGS (9)
  1. SOLOSTAR [Suspect]
     Dates: start: 20120101
  2. LANTUS [Suspect]
     Route: 058
     Dates: start: 20070101, end: 20090101
  3. FERROUS GLUCONATE [Concomitant]
  4. ASPIRIN [Concomitant]
     Indication: PROPHYLAXIS
  5. LANTUS [Suspect]
     Dosage: DOSE:6 UNIT(S)
     Route: 058
     Dates: start: 20120101
  6. SOLOSTAR [Suspect]
     Dates: start: 20070101, end: 20090101
  7. LANTUS [Suspect]
     Dosage: DOSE:15 UNIT(S)
     Route: 058
     Dates: start: 20120523
  8. OXYCODONE HCL [Concomitant]
     Indication: PAIN
     Dates: start: 20100312
  9. VITAMIN B-12 [Concomitant]

REACTIONS (2)
  - WEIGHT DECREASED [None]
  - COLON CANCER [None]
